FAERS Safety Report 8233308-2 (Version None)
Quarter: 2012Q1

REPORT INFORMATION
  Report Type: 
  Country: None (occurrence: None)
  Receive Date: 20120326
  Receipt Date: 20120314
  Transmission Date: 20120608
  Serious: Yes (Death)
  Sender: FDA-Public Use
  Company Number: US-ELI_LILLY_AND_COMPANY-US201203004245

PATIENT
  Age: 88 Year
  Sex: Female

DRUGS (1)
  1. FORTEO [Suspect]
     Indication: FRACTURE
     Dosage: UNK, UNKNOWN
     Route: 065
     Dates: start: 20040101

REACTIONS (2)
  - INTENTIONAL DRUG MISUSE [None]
  - DEATH [None]
